FAERS Safety Report 9746498 (Version 2)
Quarter: 2014Q2

REPORT INFORMATION
  Report Type: Spontaneous
  Country: US (occurrence: US)
  Receive Date: 20131211
  Receipt Date: 20140501
  Transmission Date: 20141212
  Serious: Yes (Hospitalization, Other)
  Sender: FDA-Public Use
  Company Number: US-BAYER-2013-151182

PATIENT
  Age: 41 Year
  Sex: Female
  Weight: 130.16 kg

DRUGS (10)
  1. YAZ [Suspect]
  2. YASMIN [Suspect]
  3. OCELLA [Suspect]
  4. PREVPAC [Concomitant]
     Dosage: UNK
     Dates: start: 20100826
  5. NEXIUM [Concomitant]
     Indication: GASTROOESOPHAGEAL REFLUX DISEASE
     Dosage: 20 MG, ONCE DAILY
     Dates: start: 20101013
  6. GLUCOPHAGE XR [Concomitant]
     Indication: DIABETES MELLITUS
     Dosage: 500 MG, 1 ONCE DAILY
     Dates: start: 20101013
  7. IRON [Concomitant]
  8. LEVAQUIN [Concomitant]
     Indication: PAIN
  9. LEVAQUIN [Concomitant]
     Indication: URINARY TRACT INFECTION
  10. CODEINE [Concomitant]
     Indication: PAIN

REACTIONS (7)
  - Deep vein thrombosis [None]
  - Cholecystitis acute [None]
  - Gallbladder obstruction [None]
  - Thrombosis [None]
  - Injury [None]
  - Pain [None]
  - Pain [None]
